FAERS Safety Report 5795817-5 (Version None)
Quarter: 2008Q3

REPORT INFORMATION
  Report Type: 
  Country: None (occurrence: None)
  Receive Date: 20080701
  Receipt Date: 20080619
  Transmission Date: 20090109
  Serious: Yes (Other)
  Sender: FDA-Public Use
  Company Number: VE-BAYER-200815235LA

PATIENT
  Age: 77 Year
  Sex: Male

DRUGS (4)
  1. AVELOX [Suspect]
     Indication: RESPIRATORY TRACT INFECTION
     Dosage: TOTAL DAILY DOSE: 400 MG  UNIT DOSE: 400 MG
     Route: 048
     Dates: start: 20080531, end: 20080602
  2. ROCALTROL [Concomitant]
     Indication: OSTEOPOROSIS PROPHYLAXIS
     Dosage: TOTAL DAILY DOSE: 0.5 ?G  UNIT DOSE: 0.5 ?G
     Route: 048
     Dates: start: 20070301
  3. BENUTREX [Concomitant]
     Indication: VITAMIN SUPPLEMENTATION
     Route: 048
     Dates: start: 20070301
  4. TITRALAC [Concomitant]
     Indication: DYSPEPSIA
     Route: 048
     Dates: start: 20080101

REACTIONS (3)
  - ASTHENIA [None]
  - CONFUSIONAL STATE [None]
  - DYSARTHRIA [None]
